FAERS Safety Report 5138133-7 (Version None)
Quarter: 2006Q4

REPORT INFORMATION
  Report Type: 
  Country: None (occurrence: None)
  Receive Date: 20061030
  Receipt Date: 20060419
  Transmission Date: 20070319
  Serious: No
  Sender: FDA-Public Use
  Company Number: US-GLAXOSMITHKLINE-A0602499A

PATIENT
  Sex: Female

DRUGS (1)
  1. ADVAIR HFA [Suspect]
     Route: 055

REACTIONS (3)
  - APHONIA [None]
  - DYSPHONIA [None]
  - UPPER RESPIRATORY TRACT CONGESTION [None]
